FAERS Safety Report 12120970 (Version 1)
Quarter: 2016Q1

REPORT INFORMATION
  Report Type: Spontaneous
  Country: US (occurrence: US)
  Receive Date: 20160226
  Receipt Date: 20160226
  Transmission Date: 20160526
  Serious: No
  Sender: FDA-Public Use
  Company Number: US-ALLERGAN-1115849US

PATIENT
  Sex: Female

DRUGS (1)
  1. REFRESH OPTIVE [Suspect]
     Active Substance: CARBOXYMETHYLCELLULOSE SODIUM\GLYCERIN
     Indication: EYE DISORDER
     Dosage: UNK
     Route: 047

REACTIONS (3)
  - Burning sensation [Not Recovered/Not Resolved]
  - Eye discharge [Not Recovered/Not Resolved]
  - Skin irritation [Not Recovered/Not Resolved]
